FAERS Safety Report 10085402 (Version 1)
Quarter: 2014Q2

REPORT INFORMATION
  Report Type: Spontaneous
  Country: HR (occurrence: HR)
  Receive Date: 20140418
  Receipt Date: 20140418
  Transmission Date: 20141212
  Serious: Yes (Life-Threatening)
  Sender: FDA-Public Use
  Company Number: PHHY2014HR042643

PATIENT
  Age: 62 Year
  Sex: Male

DRUGS (1)
  1. KLIMICIN [Suspect]
     Indication: SKIN INFECTION
     Dosage: 300 MG, BID
     Route: 048
     Dates: start: 20140322, end: 20140323

REACTIONS (1)
  - Asphyxia [Recovered/Resolved]
